FAERS Safety Report 6627325-3 (Version None)
Quarter: 2010Q1

REPORT INFORMATION
  Report Type: 
  Country: None (occurrence: None)
  Receive Date: 20100308
  Receipt Date: 20100301
  Transmission Date: 20100710
  Serious: Yes (Death)
  Sender: FDA-Public Use
  Company Number: ALL1-2010-01102

PATIENT
  Age: 79 Year
  Sex: Female

DRUGS (1)
  1. FOSRENOL [Suspect]
     Indication: HYPERPHOSPHATAEMIA
     Dosage: 1000 MG, OTHER PER MEAL, ORAL
     Route: 048
     Dates: start: 20080101, end: 20100222

REACTIONS (1)
  - MYOCARDIAL INFARCTION [None]
